FAERS Safety Report 11316798 (Version 2)
Quarter: 2015Q3

REPORT INFORMATION
  Report Type: Spontaneous
  Country: US (occurrence: US)
  Receive Date: 20150728
  Receipt Date: 20150811
  Transmission Date: 20151125
  Serious: No
  Sender: FDA-Public Use
  Company Number: US-PFIZER INC-2015250971

PATIENT
  Age: 52 Year
  Sex: Male
  Weight: 86 kg

DRUGS (1)
  1. VIAGRA [Suspect]
     Active Substance: SILDENAFIL CITRATE
     Dosage: 50 MG, UNK

REACTIONS (4)
  - Drug ineffective [Recovered/Resolved]
  - Drug effect decreased [Recovered/Resolved]
  - Dizziness postural [Recovering/Resolving]
  - Anorgasmia [Recovered/Resolved]

NARRATIVE: CASE EVENT DATE: 2015
